FAERS Safety Report 5624582-7 (Version None)
Quarter: 2008Q1

REPORT INFORMATION
  Report Type: 
  Country: None (occurrence: None)
  Receive Date: 20080208
  Receipt Date: 20080208
  Transmission Date: 20080703
  Serious: Yes (Hospitalization)
  Sender: FDA-Public Use
  Company Number: None

PATIENT
  Age: 63 Year
  Sex: Female

DRUGS (2)
  1. PREDNISONE;;;ADRENAL CORTICOSTEROIDS;TABLETS;; [Suspect]
     Indication: CROHN'S DISEASE
     Dosage: ORAL;20.0 MILLIGRAM
     Route: 048
     Dates: start: 20071031, end: 20071129
  2. SIMVASTATIN;;;ANTILIPEMIC AGENTS;TABLETS;; [Suspect]
     Indication: HYPERLIPIDAEMIA
     Dosage: ORAL;40.0 MILLIGRAM
     Route: 048
     Dates: start: 20070503, end: 20071206

REACTIONS (3)
  - HAEMODYNAMIC INSTABILITY [None]
  - MYOPATHY [None]
  - PNEUMOCYSTIS JIROVECI PNEUMONIA [None]
